FAERS Safety Report 14177033 (Version 1)
Quarter: 2017Q4

REPORT INFORMATION
  Report Type: Spontaneous
  Country: FR (occurrence: FR)
  Receive Date: 20171110
  Receipt Date: 20171110
  Transmission Date: 20180321
  Serious: Yes (Other)
  Sender: FDA-Public Use
  Company Number: FR-MERCK KGAA-2033788

PATIENT
  Age: 60 Year
  Sex: Female

DRUGS (7)
  1. NOVOTHYROX [Suspect]
     Active Substance: LEVOTHYROXINE SODIUM
     Indication: AUTOIMMUNE HYPOTHYROIDISM
     Route: 048
     Dates: start: 20170506, end: 20170908
  2. OGAST [Concomitant]
     Active Substance: LANSOPRAZOLE
     Route: 001
  3. LUMIGAN [Concomitant]
     Active Substance: BIMATOPROST
  4. PHYSIOTENS [Concomitant]
     Active Substance: MOXONIDINE
  5. IPERTEN [Concomitant]
     Active Substance: MANIDIPINE
  6. COTAREG [Concomitant]
     Active Substance: HYDROCHLOROTHIAZIDE\VALSARTAN
  7. OESCLIM [Concomitant]
     Active Substance: ESTRADIOL
     Route: 062

REACTIONS (7)
  - Muscle spasms [None]
  - Insomnia [None]
  - Product formulation issue [None]
  - Migraine [None]
  - Pain [None]
  - Blood thyroid stimulating hormone normal [None]
  - Hyperhidrosis [None]

NARRATIVE: CASE EVENT DATE: 2017
